FAERS Safety Report 12140632 (Version 4)
Quarter: 2016Q2

REPORT INFORMATION
  Report Type: Spontaneous
  Country: US (occurrence: US)
  Receive Date: 20160303
  Receipt Date: 20160502
  Transmission Date: 20160815
  Serious: Yes (Other)
  Sender: FDA-Public Use
  Company Number: US-PFIZER INC-2016116415

PATIENT
  Age: 59 Year
  Sex: Male
  Weight: 90.7 kg

DRUGS (2)
  1. NEURONTIN [Suspect]
     Active Substance: GABAPENTIN
     Dosage: 600 MG, UNK
  2. LYRICA [Suspect]
     Active Substance: PREGABALIN
     Indication: DIABETIC NEUROPATHY
     Dosage: 150 MG, 2X/DAY
     Route: 048
     Dates: end: 201601

REACTIONS (6)
  - Cerebrovascular accident [Unknown]
  - Insomnia [Unknown]
  - Condition aggravated [Not Recovered/Not Resolved]
  - Pain [Unknown]
  - Drug ineffective [Unknown]
  - Paraesthesia [Not Recovered/Not Resolved]

NARRATIVE: CASE EVENT DATE: 201510
